FAERS Safety Report 9671962 (Version 1)
Quarter: 2013Q4

REPORT INFORMATION
  Report Type: Spontaneous
  Country: US (occurrence: US)
  Receive Date: 20131106
  Receipt Date: 20131106
  Transmission Date: 20140711
  Serious: No
  Sender: FDA-Public Use
  Company Number: US-B.I. PHARMACEUTICALS,INC./RIDGEFIELD-2013-BI-35619BP

PATIENT
  Age: 45 Year
  Sex: Male

DRUGS (3)
  1. TRADJENTA [Suspect]
     Indication: DIABETES MELLITUS
     Dosage: 5 MG
     Route: 048
     Dates: start: 2012
  2. TEGRETOL [Concomitant]
     Indication: NEUROPATHY PERIPHERAL
     Route: 048
  3. GLYBURIDE [Concomitant]
     Route: 048

REACTIONS (2)
  - Fall [Not Recovered/Not Resolved]
  - Musculoskeletal pain [Not Recovered/Not Resolved]
